FAERS Safety Report 16164021 (Version 2)
Quarter: 2019Q2

REPORT INFORMATION
  Report Type: Report from Study
  Country: US (occurrence: US)
  Receive Date: 20190405
  Receipt Date: 20190411
  Transmission Date: 20190711
  Serious: No
  Sender: FDA-Public Use
  Company Number: US-JNJFOC-20190404101

PATIENT
  Age: 23 Year
  Sex: Male
  Weight: 69.4 kg

DRUGS (1)
  1. REMICADE [Suspect]
     Active Substance: INFLIXIMAB
     Indication: INFLAMMATORY BOWEL DISEASE
     Route: 042
     Dates: start: 20070917

REACTIONS (1)
  - Herpes simplex test positive [Not Recovered/Not Resolved]

NARRATIVE: CASE EVENT DATE: 20190308
